FAERS Safety Report 9478142 (Version 2)
Quarter: 2013Q3

REPORT INFORMATION
  Report Type: Report from Study
  Country: BE (occurrence: BE)
  Receive Date: 20130827
  Receipt Date: 20130909
  Transmission Date: 20140515
  Serious: Yes (Life-Threatening, Hospitalization, Other)
  Sender: FDA-Public Use
  Company Number: BE-GENZYME-CLOF-1002759

PATIENT
  Age: 55 Year
  Sex: Female
  Weight: 62.2 kg

DRUGS (13)
  1. EVOLTRA [Suspect]
     Indication: ACUTE MYELOID LEUKAEMIA
     Dosage: 16.2 MG, QD
     Route: 042
     Dates: start: 20130718
  2. AMSACRINE [Suspect]
     Indication: ACUTE MYELOID LEUKAEMIA
     Dosage: 194 MG, UNK
     Route: 042
     Dates: start: 20130721
  3. CYTARABINE [Suspect]
     Indication: ACUTE MYELOID LEUKAEMIA
     Dosage: 3240 MG, UNK
     Route: 042
     Dates: start: 20130718
  4. POSACONAZOLE [Concomitant]
     Indication: PROPHYLAXIS
     Dosage: 5 ML, TID
     Route: 048
     Dates: start: 20130724
  5. ACICLOVIR [Concomitant]
     Indication: PROPHYLAXIS
     Dosage: 800 MG, UNK
     Route: 048
     Dates: start: 20130717
  6. RANITIDINE [Concomitant]
     Indication: PROPHYLAXIS
     Dosage: 150 MG, UNK
     Route: 048
  7. DULOXETINE [Concomitant]
     Indication: DEPRESSION
     Dosage: 30 MG, UNK
     Route: 048
  8. CEFEPIME [Concomitant]
     Indication: INFECTION
     Dosage: 2 G, TID
     Route: 042
     Dates: start: 20130801
  9. ORNIDAZOLE [Concomitant]
     Indication: INFECTION
     Dosage: 1 G, TID
     Route: 042
     Dates: start: 20130801
  10. VANCOMYCIN [Concomitant]
     Indication: INFECTION
     Dosage: 1 G, BID
     Route: 042
     Dates: start: 20130801
  11. DAFLON [Concomitant]
     Indication: HAEMORRHOIDS
     Dosage: 30 MG, UNK
     Route: 048
     Dates: start: 20130804
  12. ESOMEPRAZOLE [Concomitant]
     Indication: PROPHYLAXIS
     Dosage: 40 MG, UNK
     Route: 048
  13. ZYVOXID [Concomitant]
     Indication: INFECTION
     Dosage: UNK
     Route: 048
     Dates: start: 20130818

REACTIONS (3)
  - Cardiac failure [Recovered/Resolved with Sequelae]
  - Acute respiratory failure [Not Recovered/Not Resolved]
  - Bone marrow failure [Unknown]
